FAERS Safety Report 25219939 (Version 1)
Quarter: 2025Q2

REPORT INFORMATION
  Report Type: Spontaneous
  Country: GB (occurrence: GB)
  Receive Date: 20250421
  Receipt Date: 20250421
  Transmission Date: 20250716
  Serious: Yes (Other)
  Sender: MYLAN
  Company Number: GB-MHRA-TPP13217908C10754026YC1744716388737

PATIENT
  Age: 60 Year
  Sex: Female
  Weight: 58 kg

DRUGS (16)
  1. LATANOPROST [Suspect]
     Active Substance: LATANOPROST
     Indication: Ill-defined disorder
  2. LATANOPROST [Suspect]
     Active Substance: LATANOPROST
     Route: 065
  3. LATANOPROST [Suspect]
     Active Substance: LATANOPROST
     Route: 065
  4. LATANOPROST [Suspect]
     Active Substance: LATANOPROST
  5. CLARITHROMYCIN [Concomitant]
     Active Substance: CLARITHROMYCIN
     Indication: Ill-defined disorder
     Dosage: 1 DOSAGE FORM, BID (ONE TWICE DAILY)
     Dates: start: 20250324, end: 20250329
  6. CLARITHROMYCIN [Concomitant]
     Active Substance: CLARITHROMYCIN
     Dosage: 1 DOSAGE FORM, BID (ONE TWICE DAILY)
     Route: 065
     Dates: start: 20250324, end: 20250329
  7. CLARITHROMYCIN [Concomitant]
     Active Substance: CLARITHROMYCIN
     Dosage: 1 DOSAGE FORM, BID (ONE TWICE DAILY)
     Route: 065
     Dates: start: 20250324, end: 20250329
  8. CLARITHROMYCIN [Concomitant]
     Active Substance: CLARITHROMYCIN
     Dosage: 1 DOSAGE FORM, BID (ONE TWICE DAILY)
     Dates: start: 20250324, end: 20250329
  9. BIMATOPROST [Concomitant]
     Active Substance: BIMATOPROST
     Indication: Ill-defined disorder
  10. BIMATOPROST [Concomitant]
     Active Substance: BIMATOPROST
     Route: 031
  11. BIMATOPROST [Concomitant]
     Active Substance: BIMATOPROST
     Route: 031
  12. BIMATOPROST [Concomitant]
     Active Substance: BIMATOPROST
  13. AMLODIPINE [Concomitant]
     Active Substance: AMLODIPINE BESYLATE
     Indication: Ill-defined disorder
     Dosage: 1 DOSAGE FORM, QD (TAKE DAILY)
     Dates: start: 20241001
  14. AMLODIPINE [Concomitant]
     Active Substance: AMLODIPINE BESYLATE
     Dosage: 1 DOSAGE FORM, QD (TAKE DAILY)
     Route: 065
     Dates: start: 20241001
  15. AMLODIPINE [Concomitant]
     Active Substance: AMLODIPINE BESYLATE
     Dosage: 1 DOSAGE FORM, QD (TAKE DAILY)
     Route: 065
     Dates: start: 20241001
  16. AMLODIPINE [Concomitant]
     Active Substance: AMLODIPINE BESYLATE
     Dosage: 1 DOSAGE FORM, QD (TAKE DAILY)
     Dates: start: 20241001

REACTIONS (3)
  - Wheezing [Unknown]
  - Dry mouth [Unknown]
  - Cough [Recovered/Resolved]
